FAERS Safety Report 15093878 (Version 1)
Quarter: 2018Q2

REPORT INFORMATION
  Report Type: Spontaneous
  Country: GB (occurrence: GB)
  Receive Date: 20180629
  Receipt Date: 20180629
  Transmission Date: 20180711
  Serious: Yes (Hospitalization, Other)
  Sender: FDA-Public Use
  Company Number: PHHY2011GB45755

PATIENT
  Age: 19 Month
  Sex: Female
  Weight: 10.6 kg

DRUGS (1)
  1. METHOTREXATE. [Suspect]
     Active Substance: METHOTREXATE
     Indication: PRODUCT USED FOR UNKNOWN INDICATION
     Dosage: 10 DF, 2.5 MG EACH
     Route: 048

REACTIONS (4)
  - Drug level above therapeutic [Recovered/Resolved]
  - Accidental overdose [Recovered/Resolved]
  - Accidental exposure to product [Recovered/Resolved]
  - Blood alkaline phosphatase increased [Recovered/Resolved]
